FAERS Safety Report 4918686-1 (Version None)
Quarter: 2006Q1

REPORT INFORMATION
  Report Type: 
  Country: None (occurrence: None)
  Receive Date: 20060222
  Receipt Date: 20051003
  Transmission Date: 20060701
  Serious: Yes (Other)
  Sender: FDA-Public Use
  Company Number: PHEH2005US10978

PATIENT
  Sex: Female

DRUGS (1)
  1. ZOMETA [Suspect]

REACTIONS (11)
  - BONE DEBRIDEMENT [None]
  - BONE DISORDER [None]
  - DENTAL CARIES [None]
  - FISTULA [None]
  - OPEN WOUND [None]
  - OSTEONECROSIS [None]
  - PAIN [None]
  - PRIMARY SEQUESTRUM [None]
  - PURULENT DISCHARGE [None]
  - SWELLING [None]
  - TOOTH DISORDER [None]
